FAERS Safety Report 17967084 (Version 2)
Quarter: 2020Q3

REPORT INFORMATION
  Report Type: Spontaneous
  Country: PT (occurrence: PT)
  Receive Date: 20200701
  Receipt Date: 20200804
  Transmission Date: 20201103
  Serious: Yes (Life-Threatening, Hospitalization, Other)
  Sender: FDA-Public Use
  Company Number: PT-ACCORD-188324

PATIENT
  Age: 29 Year
  Sex: Female

DRUGS (5)
  1. CARBOMER [Suspect]
     Active Substance: CARBOMER
     Indication: EYE LUBRICATION THERAPY
  2. SERTRALINE [Suspect]
     Active Substance: SERTRALINE HYDROCHLORIDE
     Indication: DEPRESSION
  3. THIAMAZOLE [Suspect]
     Active Substance: METHIMAZOLE
     Indication: HYPERTHYROIDISM
  4. METHYLPREDNISOLONE. [Suspect]
     Active Substance: METHYLPREDNISOLONE
     Route: 042
  5. LEVOTHYROXINE. [Suspect]
     Active Substance: LEVOTHYROXINE

REACTIONS (7)
  - Depression [Unknown]
  - Exophthalmos [Unknown]
  - Treatment noncompliance [Unknown]
  - Therapeutic product effect incomplete [Unknown]
  - Suicide attempt [Unknown]
  - Disease progression [Unknown]
  - Drug withdrawal syndrome [Recovered/Resolved]
